FAERS Safety Report 20033437 (Version 1)
Quarter: 2021Q4

REPORT INFORMATION
  Report Type: Spontaneous
  Country: DE (occurrence: None)
  Receive Date: 20211104
  Receipt Date: 20211104
  Transmission Date: 20220304
  Serious: Yes (Life-Threatening, Hospitalization, Other)
  Sender: FDA-Public Use
  Company Number: 2021A789308

PATIENT
  Age: 34 Year
  Sex: Male
  Weight: 105 kg

DRUGS (1)
  1. DAPAGLIFLOZIN [Suspect]
     Active Substance: DAPAGLIFLOZIN
     Indication: Type 2 diabetes mellitus
     Dosage: 10.0MG UNKNOWN
     Route: 048
     Dates: start: 20210406, end: 20210411

REACTIONS (1)
  - Ketoacidosis [Not Recovered/Not Resolved]

NARRATIVE: CASE EVENT DATE: 20210409
